FAERS Safety Report 6112241-6 (Version None)
Quarter: 2009Q1

REPORT INFORMATION
  Report Type: 
  Country: None (occurrence: None)
  Receive Date: 20090310
  Receipt Date: 20090226
  Transmission Date: 20090719
  Serious: Yes (Death, Life-Threatening, Other)
  Sender: FDA-Public Use
  Company Number: 2008BI027398

PATIENT
  Age: 58 Year
  Sex: Male

DRUGS (19)
  1. ZEVALIN [Suspect]
     Indication: NON-HODGKIN'S LYMPHOMA
     Dosage: 24 MCI, 1X; IV
     Route: 042
     Dates: start: 20080711, end: 20080711
  2. RITUXIMAB [Concomitant]
  3. FLUDARABINE PHOSPHATE [Concomitant]
  4. MELPHALAN [Concomitant]
  5. FRAXIPARINE [Concomitant]
  6. OMEPRAZOLE [Concomitant]
  7. METHYLPREDNISOLONE 4MG TAB [Concomitant]
  8. GANCICLOVIR [Concomitant]
  9. AMBISOME [Concomitant]
  10. PIPERACILLIN SODIUM AND TAZOBACTAM SODIUM [Concomitant]
  11. TETRACYCLINE [Concomitant]
  12. NEUPOGEN [Concomitant]
  13. TRIMETHOPRIM + SULFAMETHOXAZOLE [Concomitant]
  14. BUDESONIDE [Concomitant]
  15. TACROLIMUS [Concomitant]
  16. CYCLOSPORINE [Concomitant]
  17. URSODIOL [Concomitant]
  18. ACYCLOVIR [Concomitant]
  19. PREV MEDS = UNKNOWN [Concomitant]

REACTIONS (10)
  - ACUTE GRAFT VERSUS HOST DISEASE [None]
  - ASPERGILLOSIS [None]
  - COMPLICATIONS OF TRANSPLANT SURGERY [None]
  - CYTOMEGALOVIRUS COLITIS [None]
  - GENERAL PHYSICAL HEALTH DETERIORATION [None]
  - HYPOXIA [None]
  - MULTI-ORGAN FAILURE [None]
  - NEUTROPENIA [None]
  - SEPTIC SHOCK [None]
  - TACHYCARDIA [None]
